FAERS Safety Report 6209946-5 (Version None)
Quarter: 2009Q2

REPORT INFORMATION
  Report Type: 
  Country: None (occurrence: None)
  Receive Date: 20090601
  Receipt Date: 20090518
  Transmission Date: 20091009
  Serious: Yes (Other)
  Sender: FDA-Public Use
  Company Number: DE-PFIZER INC-2009177705

PATIENT
  Age: 57 Year

DRUGS (3)
  1. MYCOBUTIN [Suspect]
     Indication: HELICOBACTER INFECTION
     Dosage: 300MG DAILY
     Route: 048
     Dates: start: 20090213, end: 20090201
  2. OMEPRAZOL [Concomitant]
     Indication: HELICOBACTER INFECTION
     Dosage: UNK
     Route: 048
     Dates: start: 20090213, end: 20090201
  3. TAVANIC [Concomitant]
     Indication: HELICOBACTER INFECTION
     Dosage: UNK
     Dates: start: 20090213, end: 20090201

REACTIONS (4)
  - ARRHYTHMIA [None]
  - BACK PAIN [None]
  - LEUKOPENIA [None]
  - PYREXIA [None]
